FAERS Safety Report 9835394 (Version 2)
Quarter: 2014Q1

REPORT INFORMATION
  Report Type: Spontaneous
  Country: US (occurrence: US)
  Receive Date: 20140122
  Receipt Date: 20140122
  Transmission Date: 20141002
  Serious: No
  Sender: FDA-Public Use
  Company Number: US-BRISTOL-MYERS SQUIBB COMPANY-19545391

PATIENT
  Age: 89 Year
  Sex: Female
  Weight: 54.42 kg

DRUGS (5)
  1. ELIQUIS [Suspect]
     Indication: ATRIAL FIBRILLATION
     Dosage: LAST DOSE: 08-OCT-2013
     Dates: start: 20130930
  2. METOPROLOL [Concomitant]
  3. PANTOPRAZOLE [Concomitant]
  4. NORVASC [Concomitant]
  5. SYNTHROID [Concomitant]

REACTIONS (5)
  - Chest pain [Unknown]
  - Feeling abnormal [Unknown]
  - Asthenia [Unknown]
  - Gait disturbance [Unknown]
  - Heart rate increased [Unknown]
